FAERS Safety Report 19948515 (Version 7)
Quarter: 2022Q1

REPORT INFORMATION
  Report Type: Report from Study
  Country: BR (occurrence: BR)
  Receive Date: 20211012
  Receipt Date: 20220211
  Transmission Date: 20220423
  Serious: Yes (Hospitalization, Other)
  Sender: FDA-Public Use
  Company Number: BR-GILEAD-2021-0552105

PATIENT
  Age: 56 Year
  Sex: Male
  Weight: 84 kg

DRUGS (21)
  1. CENICRIVIROC [Suspect]
     Active Substance: CENICRIVIROC
     Indication: COVID-19
     Dosage: 150 MG, BID
     Route: 048
     Dates: start: 20210814, end: 20210911
  2. PLACEBO [Suspect]
     Active Substance: UNSPECIFIED INGREDIENT
     Indication: COVID-19
     Dosage: 150 MG, BID
     Route: 048
     Dates: start: 20210814, end: 20210911
  3. REMDESIVIR [Suspect]
     Active Substance: REMDESIVIR
     Indication: COVID-19
     Dosage: 200 MG, ONCE LOADING DOSE
     Route: 042
     Dates: start: 20210814, end: 20210814
  4. REMDESIVIR [Suspect]
     Active Substance: REMDESIVIR
     Dosage: 100 MG, QD MAINTENANCE DOSE
     Route: 042
     Dates: start: 20210815, end: 20210818
  5. ASPIRIN [Concomitant]
     Active Substance: ASPIRIN
  6. BUDESONIDE\FORMOTEROL [Concomitant]
     Active Substance: BUDESONIDE\FORMOTEROL
  7. DEXAMETHASONE [Concomitant]
     Active Substance: DEXAMETHASONE
  8. DEXCHLORPHENIRAMINE [Concomitant]
     Active Substance: DEXCHLORPHENIRAMINE
  9. ENOXAPARIN [Concomitant]
     Active Substance: ENOXAPARIN
  10. ESCITALOPRAM [Concomitant]
     Active Substance: ESCITALOPRAM OXALATE
  11. EZETIMIBE [Concomitant]
     Active Substance: EZETIMIBE
  12. IPRATROPIUM [Concomitant]
     Active Substance: IPRATROPIUM
  13. ISOPHANE INSULIN [Concomitant]
     Active Substance: INSULIN NOS
  14. METOPROLOL [Concomitant]
     Active Substance: METOPROLOL
  15. METOPROLOL TARTRATE [Concomitant]
     Active Substance: METOPROLOL TARTRATE
  16. OMEPRAZOLE [Concomitant]
     Active Substance: OMEPRAZOLE
  17. ROSUVASTATIN [Concomitant]
     Active Substance: ROSUVASTATIN
  18. ALBUTEROL [Concomitant]
     Active Substance: ALBUTEROL
  19. CODEINE [Concomitant]
     Active Substance: CODEINE
  20. FENOTEROL\IPRATROPIUM BROMIDE [Concomitant]
     Active Substance: FENOTEROL\IPRATROPIUM BROMIDE
  21. COLCHICINE [Concomitant]
     Active Substance: COLCHICINE

REACTIONS (1)
  - Nephrolithiasis [Recovering/Resolving]

NARRATIVE: CASE EVENT DATE: 20210930
